FAERS Safety Report 5515495-X (Version None)
Quarter: 2007Q4

REPORT INFORMATION
  Report Type: 
  Country: None (occurrence: None)
  Receive Date: 20071113
  Receipt Date: 20070306
  Transmission Date: 20080405
  Serious: No
  Sender: FDA-Public Use
  Company Number: A0642087A

PATIENT
  Age: 88 Year
  Sex: Male

DRUGS (4)
  1. COREG [Suspect]
     Indication: ATRIAL FIBRILLATION
     Dosage: 6.25MG TWICE PER DAY
     Route: 048
     Dates: start: 20070206
  2. COUMADIN [Concomitant]
  3. PREVACID [Concomitant]
  4. ANTI-CHOLESTEROL MEDICATION [Concomitant]

REACTIONS (3)
  - DYSPNOEA EXERTIONAL [None]
  - PRURITUS [None]
  - PULMONARY FUNCTION TEST DECREASED [None]
